FAERS Safety Report 24970652 (Version 3)
Quarter: 2025Q4

REPORT INFORMATION
  Report Type: Spontaneous
  Country: GB (occurrence: GB)
  Receive Date: 20250214
  Receipt Date: 20251110
  Transmission Date: 20260117
  Serious: Yes (Congenital Anomaly, Other)
  Sender: MYLAN
  Company Number: None

PATIENT
  Age: 32 Year
  Sex: Female

DRUGS (44)
  1. DOCETAXEL [Suspect]
     Active Substance: DOCETAXEL
     Indication: Breast cancer in situ
     Dosage: 100 MILLIGRAM/SQ. METER (GIVEN 3 WEEKLY)
  2. DOCETAXEL [Suspect]
     Active Substance: DOCETAXEL
     Dosage: 100 MILLIGRAM/SQ. METER (GIVEN 3 WEEKLY)
     Route: 042
  3. DOCETAXEL [Suspect]
     Active Substance: DOCETAXEL
     Dosage: 100 MILLIGRAM/SQ. METER (GIVEN 3 WEEKLY)
     Route: 042
  4. DOCETAXEL [Suspect]
     Active Substance: DOCETAXEL
     Dosage: 100 MILLIGRAM/SQ. METER (GIVEN 3 WEEKLY)
  5. EPIRUBICIN [Suspect]
     Active Substance: EPIRUBICIN
     Indication: Breast cancer in situ
     Dosage: 90 MILLIGRAM/SQ. METER (GIVEN 3 WEEKLY)
     Dates: start: 20240830, end: 20241011
  6. EPIRUBICIN [Suspect]
     Active Substance: EPIRUBICIN
     Dosage: 90 MILLIGRAM/SQ. METER (GIVEN 3 WEEKLY)
     Route: 042
     Dates: start: 20240830, end: 20241011
  7. EPIRUBICIN [Suspect]
     Active Substance: EPIRUBICIN
     Dosage: 90 MILLIGRAM/SQ. METER (GIVEN 3 WEEKLY)
     Route: 042
     Dates: start: 20240830, end: 20241011
  8. EPIRUBICIN [Suspect]
     Active Substance: EPIRUBICIN
     Dosage: 90 MILLIGRAM/SQ. METER (GIVEN 3 WEEKLY)
     Dates: start: 20240830, end: 20241011
  9. ZOLEDRONIC ACID [Suspect]
     Active Substance: ZOLEDRONIC ACID
     Indication: Breast cancer in situ
     Dosage: 4 MILLIGRAM (GIVEN 6 WEEKLY)
     Dates: start: 20240920, end: 20241213
  10. ZOLEDRONIC ACID [Suspect]
     Active Substance: ZOLEDRONIC ACID
     Dosage: 4 MILLIGRAM (GIVEN 6 WEEKLY)
     Route: 042
     Dates: start: 20240920, end: 20241213
  11. ZOLEDRONIC ACID [Suspect]
     Active Substance: ZOLEDRONIC ACID
     Dosage: 4 MILLIGRAM (GIVEN 6 WEEKLY)
     Route: 042
     Dates: start: 20240920, end: 20241213
  12. ZOLEDRONIC ACID [Suspect]
     Active Substance: ZOLEDRONIC ACID
     Dosage: 4 MILLIGRAM (GIVEN 6 WEEKLY)
     Dates: start: 20240920, end: 20241213
  13. CYCLOPHOSPHAMIDE [Suspect]
     Active Substance: CYCLOPHOSPHAMIDE
     Indication: Breast cancer in situ
     Dosage: 600 MILLIGRAM/SQ. METER (GIVEN 3 WEEKLY)
     Dates: start: 20240830, end: 20241011
  14. CYCLOPHOSPHAMIDE [Suspect]
     Active Substance: CYCLOPHOSPHAMIDE
     Dosage: 600 MILLIGRAM/SQ. METER (GIVEN 3 WEEKLY)
     Route: 042
     Dates: start: 20240830, end: 20241011
  15. CYCLOPHOSPHAMIDE [Suspect]
     Active Substance: CYCLOPHOSPHAMIDE
     Dosage: 600 MILLIGRAM/SQ. METER (GIVEN 3 WEEKLY)
     Route: 042
     Dates: start: 20240830, end: 20241011
  16. CYCLOPHOSPHAMIDE [Suspect]
     Active Substance: CYCLOPHOSPHAMIDE
     Dosage: 600 MILLIGRAM/SQ. METER (GIVEN 3 WEEKLY)
     Dates: start: 20240830, end: 20241011
  17. GOSERELIN [Suspect]
     Active Substance: GOSERELIN
     Indication: Breast cancer in situ
     Dosage: 3.6 MILLIGRAM (4 WEEKLY)
     Dates: start: 20240920, end: 20250110
  18. GOSERELIN [Suspect]
     Active Substance: GOSERELIN
     Dosage: 3.6 MILLIGRAM (4 WEEKLY)
     Route: 058
     Dates: start: 20240920, end: 20250110
  19. GOSERELIN [Suspect]
     Active Substance: GOSERELIN
     Dosage: 3.6 MILLIGRAM (4 WEEKLY)
     Route: 058
     Dates: start: 20240920, end: 20250110
  20. GOSERELIN [Suspect]
     Active Substance: GOSERELIN
     Dosage: 3.6 MILLIGRAM (4 WEEKLY)
     Dates: start: 20240920, end: 20250110
  21. LEVOFLOXACIN [Concomitant]
     Active Substance: LEVOFLOXACIN
     Dosage: UNK
  22. LEVOFLOXACIN [Concomitant]
     Active Substance: LEVOFLOXACIN
     Dosage: UNK
     Route: 065
  23. LEVOFLOXACIN [Concomitant]
     Active Substance: LEVOFLOXACIN
     Dosage: UNK
     Route: 065
  24. LEVOFLOXACIN [Concomitant]
     Active Substance: LEVOFLOXACIN
     Dosage: UNK
  25. METOCLOPRAMIDE [Concomitant]
     Active Substance: METOCLOPRAMIDE
     Dosage: UNK
  26. METOCLOPRAMIDE [Concomitant]
     Active Substance: METOCLOPRAMIDE
     Dosage: UNK
     Route: 065
  27. METOCLOPRAMIDE [Concomitant]
     Active Substance: METOCLOPRAMIDE
     Dosage: UNK
     Route: 065
  28. METOCLOPRAMIDE [Concomitant]
     Active Substance: METOCLOPRAMIDE
     Dosage: UNK
  29. FLUCONAZOLE [Concomitant]
     Active Substance: FLUCONAZOLE
     Dosage: UNK
  30. FLUCONAZOLE [Concomitant]
     Active Substance: FLUCONAZOLE
     Dosage: UNK
     Route: 065
  31. FLUCONAZOLE [Concomitant]
     Active Substance: FLUCONAZOLE
     Dosage: UNK
     Route: 065
  32. FLUCONAZOLE [Concomitant]
     Active Substance: FLUCONAZOLE
     Dosage: UNK
  33. DEXAMETHASONE [Concomitant]
     Active Substance: DEXAMETHASONE
     Dosage: UNK
  34. DEXAMETHASONE [Concomitant]
     Active Substance: DEXAMETHASONE
     Dosage: UNK
     Route: 065
  35. DEXAMETHASONE [Concomitant]
     Active Substance: DEXAMETHASONE
     Dosage: UNK
     Route: 065
  36. DEXAMETHASONE [Concomitant]
     Active Substance: DEXAMETHASONE
     Dosage: UNK
  37. GRANISETRON [Concomitant]
     Active Substance: GRANISETRON
     Dosage: UNK
  38. GRANISETRON [Concomitant]
     Active Substance: GRANISETRON
     Dosage: UNK
     Route: 065
  39. GRANISETRON [Concomitant]
     Active Substance: GRANISETRON
     Dosage: UNK
     Route: 065
  40. GRANISETRON [Concomitant]
     Active Substance: GRANISETRON
     Dosage: UNK
  41. FILGRASTIM [Concomitant]
     Active Substance: FILGRASTIM
     Dosage: UNK
  42. FILGRASTIM [Concomitant]
     Active Substance: FILGRASTIM
     Dosage: UNK
     Route: 065
  43. FILGRASTIM [Concomitant]
     Active Substance: FILGRASTIM
     Dosage: UNK
     Route: 065
  44. FILGRASTIM [Concomitant]
     Active Substance: FILGRASTIM
     Dosage: UNK

REACTIONS (2)
  - Ultrasound foetal abnormal [Unknown]
  - Maternal exposure during pregnancy [Unknown]
